FAERS Safety Report 17115702 (Version 1)
Quarter: 2019Q4

REPORT INFORMATION
  Report Type: Report from Study
  Country: CH (occurrence: CH)
  Receive Date: 20191205
  Receipt Date: 20191205
  Transmission Date: 20200122
  Serious: Yes (Other)
  Sender: FDA-Public Use
  Company Number: NVSC2019CH041684

PATIENT

DRUGS (4)
  1. BLINDED FTY 720 [Suspect]
     Active Substance: FINGOLIMOD HYDROCHLORIDE
     Indication: RELAPSING MULTIPLE SCLEROSIS
     Dosage: CODE NOT BROKEN
     Route: 065
  2. BLINDED NO TREATMENT RECEIVED [Suspect]
     Active Substance: INVESTIGATIONAL PRODUCT
     Indication: RELAPSING MULTIPLE SCLEROSIS
     Dosage: CODE NOT BROKEN
     Route: 065
  3. BLINDED FTY 720 [Suspect]
     Active Substance: FINGOLIMOD HYDROCHLORIDE
     Indication: RELAPSING MULTIPLE SCLEROSIS
     Dosage: CODE NOT BROKEN
     Route: 065
  4. BLINDED PLACEBO [Suspect]
     Active Substance: INVESTIGATIONAL PRODUCT
     Indication: RELAPSING MULTIPLE SCLEROSIS
     Dosage: CODE NOT BROKEN
     Route: 065

REACTIONS (1)
  - Hypertension [Unknown]
